FAERS Safety Report 11969439 (Version 1)
Quarter: 2016Q1

REPORT INFORMATION
  Report Type: Report from Study
  Country: CA (occurrence: CA)
  Receive Date: 20160128
  Receipt Date: 20160128
  Transmission Date: 20160526
  Serious: Yes (Life-Threatening, Hospitalization, Other)
  Sender: FDA-Public Use
  Company Number: CA-ROCHE-1607691

PATIENT
  Age: 80 Year
  Sex: Female

DRUGS (12)
  1. MYRBETRIQ [Concomitant]
     Active Substance: MIRABEGRON
  2. PANTOPRAZOLE [Concomitant]
     Active Substance: PANTOPRAZOLE SODIUM
  3. NORTRIPTYLINE [Concomitant]
     Active Substance: NORTRIPTYLINE
  4. AZATHIOPRINE. [Concomitant]
     Active Substance: AZATHIOPRINE
  5. RITUXAN [Suspect]
     Active Substance: RITUXIMAB
     Indication: RHEUMATOID ARTHRITIS
     Dosage: DAY 1, 15
     Route: 042
     Dates: start: 20150707, end: 20150720
  6. METHYLPREDNISOLONE. [Concomitant]
     Active Substance: METHYLPREDNISOLONE
     Dosage: RITUXAN PREMEDICATION
     Route: 042
     Dates: start: 20150707, end: 20150720
  7. DOMPERIDONE [Concomitant]
     Active Substance: DOMPERIDONE
  8. AMLODIPINE [Concomitant]
     Active Substance: AMLODIPINE BESYLATE
  9. PREDNISONE. [Concomitant]
     Active Substance: PREDNISONE
  10. MACROBID [Concomitant]
     Active Substance: NITROFURANTOIN\NITROFURANTOIN MONOHYDRATE
  11. ASA [Concomitant]
     Active Substance: ASPIRIN
     Route: 065
  12. BISOPROLOL [Concomitant]
     Active Substance: BISOPROLOL

REACTIONS (14)
  - Wheezing [Not Recovered/Not Resolved]
  - Haemorrhage [Unknown]
  - Fatigue [Unknown]
  - Swelling [Unknown]
  - Listless [Unknown]
  - General physical health deterioration [Unknown]
  - Pulmonary thrombosis [Unknown]
  - Headache [Unknown]
  - Internal haemorrhage [Unknown]
  - Pneumonia [Recovered/Resolved]
  - Dyspnoea [Not Recovered/Not Resolved]
  - Pulmonary fibrosis [Not Recovered/Not Resolved]
  - Cystitis [Unknown]
  - Joint swelling [Unknown]

NARRATIVE: CASE EVENT DATE: 20150712
